FAERS Safety Report 12094521 (Version 1)
Quarter: 2016Q1

REPORT INFORMATION
  Report Type: Spontaneous
  Country: SE (occurrence: SE)
  Receive Date: 20160219
  Receipt Date: 20160219
  Transmission Date: 20160526
  Serious: Yes (Death, Hospitalization, Other)
  Sender: FDA-Public Use
  Company Number: SE-JNJFOC-20160215565

PATIENT

DRUGS (1)
  1. IBRUTINIB [Suspect]
     Active Substance: IBRUTINIB
     Indication: CHRONIC LYMPHOCYTIC LEUKAEMIA
     Route: 048

REACTIONS (12)
  - Richter^s syndrome [Fatal]
  - Death [Fatal]
  - Neutropenia [Unknown]
  - Haemorrhage [Unknown]
  - Neoplasm [Fatal]
  - Adverse event [Unknown]
  - Infection [Fatal]
  - Diarrhoea [Unknown]
  - Myalgia [Unknown]
  - Atrial fibrillation [Unknown]
  - Chronic lymphocytic leukaemia [Fatal]
  - Neoplasm malignant [Unknown]
